FAERS Safety Report 25365676 (Version 1)
Quarter: 2025Q2

REPORT INFORMATION
  Report Type: Spontaneous
  Country: FR (occurrence: FR)
  Receive Date: 20250527
  Receipt Date: 20250527
  Transmission Date: 20250716
  Serious: Yes (Death, Hospitalization)
  Sender: MERCK SHARP & DOHME LLC
  Company Number: FR-ASTELLAS-2025-AER-022820

PATIENT
  Age: 79 Year
  Sex: Male

DRUGS (3)
  1. KEYTRUDA [Suspect]
     Active Substance: PEMBROLIZUMAB
     Indication: Transitional cell carcinoma metastatic
     Route: 042
  2. ENFORTUMAB VEDOTIN [Suspect]
     Active Substance: ENFORTUMAB VEDOTIN
     Indication: Transitional cell carcinoma metastatic
     Route: 042
     Dates: start: 20250407
  3. ENFORTUMAB VEDOTIN [Suspect]
     Active Substance: ENFORTUMAB VEDOTIN
     Indication: Transitional cell carcinoma metastatic
     Route: 042
     Dates: start: 20250331

REACTIONS (4)
  - Death [Fatal]
  - Hyperglycaemia [Unknown]
  - Asthenia [Unknown]
  - Rash [Unknown]

NARRATIVE: CASE EVENT DATE: 20250420
